FAERS Safety Report 6704257-3 (Version None)
Quarter: 2010Q2

REPORT INFORMATION
  Report Type: 
  Country: None (occurrence: None)
  Receive Date: 20100430
  Receipt Date: 20091014
  Transmission Date: 20101027
  Serious: No
  Sender: FDA-Public Use
  Company Number: US-TYCO HEALTHCARE/MALLINCKRODT-T200901892

PATIENT
  Sex: Female
  Weight: 68.027 kg

DRUGS (8)
  1. ACETAMINOPHEN AND HYDROCODONE BITARTRATE [Suspect]
     Indication: PAIN
     Dosage: ONE TAB QHS
     Route: 048
     Dates: start: 20091007, end: 20091010
  2. LOVASTATIN [Concomitant]
     Indication: BLOOD CHOLESTEROL INCREASED
     Dosage: UNK
     Route: 048
  3. LEVOTHYROXINE [Concomitant]
     Indication: HYPOTHYROIDISM
     Dosage: UNK
     Route: 048
  4. FOSAMAX [Concomitant]
     Indication: BONE DISORDER
     Dosage: WEEKLY
     Route: 048
  5. COQ10 [Concomitant]
     Indication: SUPPLEMENTATION THERAPY
     Dosage: UNK
     Route: 048
  6. FLUTICASONE PROPIONATE [Concomitant]
     Indication: PROPHYLAXIS
     Dosage: 1-2X A WEEK
     Route: 045
  7. MULTIVITAMIN                       /01229101/ [Concomitant]
     Indication: SUPPLEMENTATION THERAPY
     Dosage: UNK
     Route: 048
  8. IBUPROFEN [Concomitant]
     Indication: PAIN
     Dosage: 800 MG, QD
     Route: 048

REACTIONS (4)
  - BACK PAIN [None]
  - CHEST DISCOMFORT [None]
  - HYPOVENTILATION [None]
  - OEDEMA PERIPHERAL [None]
